FAERS Safety Report 25717584 (Version 1)
Quarter: 2025Q3

REPORT INFORMATION
  Report Type: Spontaneous
  Country: GB (occurrence: GB)
  Receive Date: 20250822
  Receipt Date: 20250822
  Transmission Date: 20251021
  Serious: Yes (Other)
  Sender: DAIICHI
  Company Number: None

PATIENT
  Age: 94 Year
  Sex: Female
  Weight: 57 kg

DRUGS (1)
  1. EDOXABAN [Suspect]
     Active Substance: EDOXABAN
     Indication: Cardiac pacemaker insertion
     Route: 065
     Dates: start: 202404, end: 202507

REACTIONS (1)
  - Steatorrhoea [Recovered/Resolved]

NARRATIVE: CASE EVENT DATE: 20240601
